FAERS Safety Report 7326861-4 (Version None)
Quarter: 2011Q1

REPORT INFORMATION
  Report Type: 
  Country: None (occurrence: None)
  Receive Date: 20110302
  Receipt Date: 20091021
  Transmission Date: 20110831
  Serious: No
  Sender: FDA-Public Use
  Company Number: US-PFIZER INC-2009288196

PATIENT
  Age: 29 Year
  Sex: Female
  Weight: 68.038 kg

DRUGS (1)
  1. DILANTIN-125 [Suspect]
     Indication: CONVULSION
     Dosage: 300 MG, 1X/DAY
     Dates: start: 19980101

REACTIONS (3)
  - DIZZINESS [None]
  - ANTICONVULSANT DRUG LEVEL INCREASED [None]
  - MUSCLE TWITCHING [None]
